FAERS Safety Report 25969397 (Version 2)
Quarter: 2025Q4

REPORT INFORMATION
  Report Type: Report from Study
  Country: PA (occurrence: PA)
  Receive Date: 20251028
  Receipt Date: 20251031
  Transmission Date: 20260118
  Serious: Yes (Other)
  Sender: NOVARTIS
  Company Number: PA-002147023-NVSC2025PA165638

PATIENT
  Sex: Female

DRUGS (1)
  1. EXFORGE HCT [Suspect]
     Active Substance: AMLODIPINE BESYLATE\HYDROCHLOROTHIAZIDE\VALSARTAN
     Indication: Hypertension
     Dosage: 1 DOSAGE FORM, QD
     Route: 048

REACTIONS (6)
  - Diabetes mellitus [Not Recovered/Not Resolved]
  - Asthenia [Unknown]
  - Blood pressure decreased [Recovering/Resolving]
  - Dizziness [Unknown]
  - Discomfort [Unknown]
  - Fatigue [Unknown]
